FAERS Safety Report 8079927-8 (Version None)
Quarter: 2012Q1

REPORT INFORMATION
  Report Type: 
  Country: None (occurrence: None)
  Receive Date: 20120128
  Receipt Date: 20110722
  Transmission Date: 20120608
  Serious: No
  Sender: FDA-Public Use
  Company Number: US-ABBOTT-11P-163-0841259-00

PATIENT
  Age: 53 Year
  Sex: Female

DRUGS (2)
  1. HUMIRA [Suspect]
     Indication: RHEUMATOID ARTHRITIS
     Dates: start: 20110622
  2. ACTONEL [Concomitant]
     Indication: OSTEOPOROSIS

REACTIONS (6)
  - GAIT DISTURBANCE [None]
  - INSOMNIA [None]
  - FATIGUE [None]
  - RHEUMATOID ARTHRITIS [None]
  - ARTHRALGIA [None]
  - JOINT STIFFNESS [None]
